FAERS Safety Report 7521469-X (Version None)
Quarter: 2011Q2

REPORT INFORMATION
  Report Type: 
  Country: None (occurrence: None)
  Receive Date: 20110603
  Receipt Date: 20110307
  Transmission Date: 20111010
  Serious: Yes (Hospitalization)
  Sender: FDA-Public Use
  Company Number: US-BAYER-2010-008863

PATIENT
  Age: 38 Year
  Sex: Female
  Weight: 77.098 kg

DRUGS (4)
  1. YASMIN [Suspect]
     Indication: ACNE
  2. DROSPIRENONE AND ETHINYL ESTRADIOL [Suspect]
     Indication: ACNE
  3. NAPROSYN [Concomitant]
     Indication: BACK PAIN
     Dosage: 250 MG, UNK
     Route: 048
  4. YAZ [Suspect]
     Indication: ACNE

REACTIONS (4)
  - PAIN [None]
  - GALLBLADDER DISORDER [None]
  - INJURY [None]
  - CHOLECYSTITIS CHRONIC [None]
